FAERS Safety Report 8942520 (Version 1)
Quarter: 2012Q4

REPORT INFORMATION
  Report Type: 
  Country: US (occurrence: US)
  Receive Date: 20121204
  Receipt Date: 20121204
  Transmission Date: 20130627
  Serious: Yes (Other)
  Sender: FDA-Public Use
  Company Number: US-SANOFI-AVENTIS-2012SA088362

PATIENT
  Age: 63 Year
  Sex: Female

DRUGS (15)
  1. PLAVIX [Suspect]
     Indication: CATHETER PLACEMENT
     Route: 048
     Dates: start: 2004
  2. ASPIRIN [Suspect]
     Route: 065
     Dates: end: 201209
  3. METFORMIN [Concomitant]
  4. LOVASTATIN [Concomitant]
  5. CARDIZEM [Concomitant]
  6. TRIAMTERENE [Concomitant]
  7. K-LOR [Concomitant]
  8. VENTOLINE [Concomitant]
  9. OMEPRAZOLE [Concomitant]
  10. BUSPIRONE [Concomitant]
  11. ALBUTEROL [Concomitant]
     Indication: COPD
     Dosage: inhaler solution
  12. ATROVENT [Concomitant]
     Dosage: inhaler
  13. ULTRAM [Concomitant]
  14. SPIRIVA [Concomitant]
  15. LORATADINE [Concomitant]

REACTIONS (2)
  - Carotid artery occlusion [Unknown]
  - Contusion [Unknown]
